FAERS Safety Report 10974318 (Version 1)
Quarter: 2015Q2

REPORT INFORMATION
  Report Type: Spontaneous
  Country: BR (occurrence: BR)
  Receive Date: 20150401
  Receipt Date: 20150401
  Transmission Date: 20150821
  Serious: Yes (Death, Other)
  Sender: FDA-Public Use
  Company Number: BR-PFIZER INC-2015109053

PATIENT
  Age: 84 Year
  Sex: Female
  Weight: 52 kg

DRUGS (7)
  1. ACLASTA [Concomitant]
     Active Substance: ZOLEDRONIC ACID
     Indication: BONE DISORDER
     Dosage: 1 INJECTION, YEARLY
     Dates: start: 2013
  2. VITAMIN D [Concomitant]
     Active Substance: CHOLECALCIFEROL
     Indication: CALCIUM DEFICIENCY
     Dosage: 1 CAPSULE, DAILY
     Dates: start: 2013
  3. LIPITOR [Suspect]
     Active Substance: ATORVASTATIN CALCIUM
     Indication: BLOOD CHOLESTEROL ABNORMAL
     Dosage: 1 TABLET OF STRENGTH 10 MG, DAILY
     Route: 048
     Dates: start: 2013
  4. OMEGA 3 [Concomitant]
     Active Substance: OMEGA-3 FATTY ACIDS
     Indication: VITAMIN SUPPLEMENTATION
     Dosage: 1 CAPSULE, DAILY
     Dates: start: 2013
  5. VITAMIN E [Concomitant]
     Active Substance: .ALPHA.-TOCOPHEROL
     Indication: ANGIOPATHY
     Dosage: 2 TABLETS, DAILY
     Dates: start: 2013
  6. CALCIUM [Concomitant]
     Active Substance: CALCIUM
     Indication: OSTEOARTHRITIS
     Dosage: 1 TABLET, DAILY
     Dates: start: 2005
  7. ERANZ [Suspect]
     Active Substance: DONEPEZIL HYDROCHLORIDE
     Indication: DEMENTIA ALZHEIMER^S TYPE
     Dosage: 1 TABLET OF STRENGTH 10 MG, DAILY
     Route: 048
     Dates: start: 2013

REACTIONS (10)
  - Pre-existing condition improved [Unknown]
  - Cerebrovascular accident [Unknown]
  - Death [Fatal]
  - Hemiplegia [Unknown]
  - Pyrexia [Unknown]
  - Therapeutic response unexpected [Unknown]
  - Ischaemia [Unknown]
  - Infection [Unknown]
  - Aphasia [Unknown]
  - Coma [Unknown]

NARRATIVE: CASE EVENT DATE: 201502
